FAERS Safety Report 5518772-1 (Version None)
Quarter: 2007Q4

REPORT INFORMATION
  Report Type: 
  Country: None (occurrence: None)
  Receive Date: 20071115
  Receipt Date: 20071101
  Transmission Date: 20080405
  Serious: Yes (Other)
  Sender: FDA-Public Use
  Company Number: BR-RANBAXY-2007R5-11235

PATIENT

DRUGS (1)
  1. ISOTRETINOINA [Suspect]
     Indication: ACNE
     Dosage: 20 MG, QD
     Route: 048
     Dates: start: 20071027, end: 20071029

REACTIONS (5)
  - ABDOMINAL PAIN UPPER [None]
  - HAEMATOMA [None]
  - NAUSEA [None]
  - PLATELET COUNT DECREASED [None]
  - PURPURA [None]
